FAERS Safety Report 15697510 (Version 2)
Quarter: 2018Q4

REPORT INFORMATION
  Report Type: Spontaneous
  Country: US (occurrence: US)
  Receive Date: 20181207
  Receipt Date: 20181207
  Transmission Date: 20190205
  Serious: No
  Sender: FDA-Public Use
  Company Number: US-009507513-1812USA000017

PATIENT
  Sex: Male

DRUGS (3)
  1. TRAVOPROST. [Concomitant]
     Active Substance: TRAVOPROST
  2. TIMOLOL. [Concomitant]
     Active Substance: TIMOLOL
  3. TRUSOPT [Suspect]
     Active Substance: DORZOLAMIDE HYDROCHLORIDE
     Indication: INTRAOCULAR PRESSURE INCREASED
     Dosage: UNK

REACTIONS (1)
  - Product use in unapproved indication [Unknown]
